FAERS Safety Report 18817270 (Version 3)
Quarter: 2021Q2

REPORT INFORMATION
  Report Type: Spontaneous
  Country: US (occurrence: US)
  Receive Date: 20210201
  Receipt Date: 20210413
  Transmission Date: 20210717
  Serious: No
  Sender: FDA-Public Use
  Company Number: US-KARYOPHARM-2020KPT001541

PATIENT

DRUGS (11)
  1. ASPIRIN ACTAVIS [Concomitant]
     Indication: PRODUCT USED FOR UNKNOWN INDICATION
  2. MAGIC MOUTHWASH [Concomitant]
     Active Substance: DIPHENHYDRAMINE HYDROCHLORIDE\LIDOCAINE HYDROCHLORIDE\NYSTATIN
     Indication: PRODUCT USED FOR UNKNOWN INDICATION
  3. XPOVIO [Suspect]
     Active Substance: SELINEXOR
     Indication: ACUTE MYELOID LEUKAEMIA
     Dosage: 80 MG, WEEKLY
     Route: 048
     Dates: start: 20201203, end: 20210216
  4. CINVANTI [Concomitant]
     Active Substance: APREPITANT
     Indication: PRODUCT USED FOR UNKNOWN INDICATION
  5. DEXAMETHASONE. [Concomitant]
     Active Substance: DEXAMETHASONE
     Indication: PRODUCT USED FOR UNKNOWN INDICATION
  6. OLANZAPINE. [Concomitant]
     Active Substance: OLANZAPINE
     Indication: PRODUCT USED FOR UNKNOWN INDICATION
  7. OXYCODONE [Concomitant]
     Active Substance: OXYCODONE
     Indication: PRODUCT USED FOR UNKNOWN INDICATION
     Dosage: UNK
  8. NINLARO [Concomitant]
     Active Substance: IXAZOMIB CITRATE
     Indication: ACUTE MYELOID LEUKAEMIA
     Dosage: UNK
  9. ZOFRAN [Concomitant]
     Active Substance: ONDANSETRON HYDROCHLORIDE
     Indication: NAUSEA
  10. BORTEZOMIB. [Concomitant]
     Active Substance: BORTEZOMIB
     Indication: ACUTE MYELOID LEUKAEMIA
     Dosage: UNK
     Dates: start: 202101
  11. NINLARO [Concomitant]
     Active Substance: IXAZOMIB CITRATE
     Dosage: UNK
     Dates: start: 202101

REACTIONS (26)
  - Acute myeloid leukaemia recurrent [Unknown]
  - Off label use [Unknown]
  - Product dose omission issue [Unknown]
  - Nightmare [Unknown]
  - Platelet count decreased [Not Recovered/Not Resolved]
  - Cough [Unknown]
  - Hordeolum [Unknown]
  - Vertigo [Unknown]
  - Apathy [Unknown]
  - Disturbance in attention [Unknown]
  - Epistaxis [Unknown]
  - Diarrhoea [Unknown]
  - Somnolence [Not Recovered/Not Resolved]
  - Middle insomnia [Not Recovered/Not Resolved]
  - Productive cough [Unknown]
  - Oral candidiasis [Not Recovered/Not Resolved]
  - Emotional distress [Unknown]
  - Weight decreased [Unknown]
  - Nocturia [Unknown]
  - Oropharyngeal pain [Unknown]
  - Ear discomfort [Not Recovered/Not Resolved]
  - Dysphagia [Unknown]
  - Decreased appetite [Not Recovered/Not Resolved]
  - Vomiting [Not Recovered/Not Resolved]
  - Asthenia [Recovered/Resolved]
  - Therapy non-responder [Unknown]

NARRATIVE: CASE EVENT DATE: 202012
